FAERS Safety Report 9587566 (Version 2)
Quarter: 2013Q4

REPORT INFORMATION
  Report Type: Report from Study
  Country: DE (occurrence: DE)
  Receive Date: 20131003
  Receipt Date: 20131015
  Transmission Date: 20140711
  Serious: Yes (Hospitalization, Other)
  Sender: FDA-Public Use
  Company Number: PHHO2013DE012711

PATIENT
  Sex: 0

DRUGS (10)
  1. TICLOPIDINE [Suspect]
     Indication: ATRIAL FIBRILLATION
     Dosage: 250 MG, UNK
     Route: 048
     Dates: start: 201108
  2. ACETYLSALICYLIC ACID [Suspect]
     Indication: ATRIAL FIBRILLATION
     Dosage: 100 MG, QD
     Dates: start: 20120519, end: 20121211
  3. ACETYLSALICYLIC ACID [Suspect]
     Dosage: UNK
     Dates: start: 20121219
  4. CGP 57148B [Suspect]
     Indication: CHRONIC MYELOID LEUKAEMIA
     Dosage: 400 MG, QD
     Route: 048
     Dates: start: 20030901, end: 20121211
  5. CGP 57148B [Suspect]
     Dosage: 400 MG, QD
     Route: 048
     Dates: start: 201212
  6. NOVODIGAL [Concomitant]
  7. RAMIPRIL [Concomitant]
     Indication: HYPERTENSION
     Dosage: 5 MG, QD
  8. AMLODIPINE [Concomitant]
     Indication: HYPERTENSION
     Dosage: 5 MG, UNK
  9. INSULIN [Concomitant]
     Indication: DIABETES MELLITUS
     Dosage: 26-0-14
  10. CARBIMAZOLE [Concomitant]
     Indication: HYPERTHYROIDISM
     Dosage: 10 MG, QD
     Dates: end: 20121211

REACTIONS (4)
  - Anaemia [Recovered/Resolved]
  - Gastrointestinal haemorrhage [Recovered/Resolved]
  - Diabetes mellitus [Recovered/Resolved]
  - Polyp [Not Recovered/Not Resolved]
